FAERS Safety Report 7636426-2 (Version None)
Quarter: 2011Q3

REPORT INFORMATION
  Report Type: 
  Country: None (occurrence: None)
  Receive Date: 20110726
  Receipt Date: 20110725
  Transmission Date: 20111222
  Serious: Yes (Hospitalization)
  Sender: FDA-Public Use
  Company Number: BE-BRISTOL-MYERS SQUIBB COMPANY-15921927

PATIENT
  Age: 74 Year
  Sex: Female
  Weight: 66 kg

DRUGS (18)
  1. CARBOPLATIN [Suspect]
     Indication: NON-SMALL CELL LUNG CANCER
     Dosage: AUC=6 ON DAY 1 OF 3 WEEK CYCLE. LAST DOSE ON 30JUN11.
     Dates: start: 20110630
  2. RAMUCIRUMAB [Suspect]
     Indication: NON-SMALL CELL LUNG CANCER
     Dosage: 1 OF  3 WEEK CYCLE.LAST DOSE ON 30JUN11.
     Route: 042
     Dates: start: 20110630
  3. MULTI-VITAMIN [Concomitant]
     Dates: start: 20110210
  4. DOXEPIN [Concomitant]
  5. IRON SULFATETHIAMIN COMPOUND TAB [Concomitant]
  6. VITAMIN D [Concomitant]
  7. VITAMIN B-12 [Concomitant]
     Dates: start: 20110624
  8. DIGOXIN [Concomitant]
  9. CARVEDILOL [Concomitant]
  10. ETHACRYNIC ACID [Concomitant]
  11. LOVASTATIN [Concomitant]
  12. TRAZODONE HCL [Concomitant]
  13. PEMETREXED DISODIUM [Suspect]
     Indication: NON-SMALL CELL LUNG CANCER
     Dosage: 1 OF  3 WEEK CYCLE. LAST DOSE ON 30JUN11.
     Route: 042
     Dates: start: 20110630
  14. CLONAZEPAM [Concomitant]
  15. ALLOPURINOL [Concomitant]
  16. VITAMIN B [Concomitant]
  17. FOLIC ACID [Concomitant]
     Dates: start: 20110623
  18. PROCHLORPERAZINE [Concomitant]

REACTIONS (2)
  - ATRIAL FIBRILLATION [None]
  - INTESTINAL ISCHAEMIA [None]
